FAERS Safety Report 25627164 (Version 1)
Quarter: 2025Q3

REPORT INFORMATION
  Report Type: Report from Study
  Country: US (occurrence: US)
  Receive Date: 20250731
  Receipt Date: 20250731
  Transmission Date: 20251021
  Serious: No
  Sender: SUNOVION
  Company Number: US-SUMITOMO PHARMA SWITZERLAND GMBH-2025SPA009412

PATIENT

DRUGS (2)
  1. ORGOVYX [Suspect]
     Active Substance: RELUGOLIX
     Indication: Prostate cancer
     Route: 048
     Dates: start: 20250718
  2. ORGOVYX [Suspect]
     Active Substance: RELUGOLIX
     Route: 048
     Dates: start: 20250719

REACTIONS (7)
  - Peripheral swelling [Unknown]
  - Sleep disorder [Unknown]
  - Joint swelling [Unknown]
  - Anxiety [Recovering/Resolving]
  - Abdominal pain upper [Unknown]
  - Night sweats [Unknown]
  - Blood pressure increased [Unknown]
